FAERS Safety Report 8180603-1 (Version None)
Quarter: 2012Q1

REPORT INFORMATION
  Report Type: 
  Country: None (occurrence: None)
  Receive Date: 20120302
  Receipt Date: 20120216
  Transmission Date: 20120608
  Serious: Yes (Hospitalization, Congenital Anomaly, Other)
  Sender: FDA-Public Use
  Company Number: DE-ARROW GEN-2012-02702

PATIENT
  Sex: Female
  Weight: 0.86 kg

DRUGS (5)
  1. AZATHIOPRINE [Suspect]
     Indication: CROHN'S DISEASE
     Dosage: 150 [MG/D ]/WEEK 0-4.3 AND 18-27.5
     Route: 064
     Dates: start: 20080726
  2. REMICADE [Suspect]
     Indication: CROHN'S DISEASE
     Dosage: 300 MG, EVERY 8 WEEK
     Route: 064
  3. FEMIBION 800 FOLSAURE + METABOLIN [Suspect]
     Indication: PROPHYLAXIS OF NEURAL TUBE DEFECT
     Dosage: 0.4 MG, DAILY
     Route: 064
  4. METHYLPREDNISOLONE [Suspect]
     Indication: ANTIINFLAMMATORY THERAPY
     Dosage: HIGH DOSE, NO MORE DETAILS
     Route: 064
     Dates: start: 20090126, end: 20090205
  5. PREDNISOLONE [Suspect]
     Indication: CROHN'S DISEASE
     Dosage: 15 MG, DAILY
     Route: 064

REACTIONS (5)
  - PREMATURE BABY [None]
  - HAEMANGIOMA [None]
  - ATRIAL SEPTAL DEFECT [None]
  - INGUINAL HERNIA [None]
  - NEONATAL HYPONATRAEMIA [None]
